FAERS Safety Report 25958285 (Version 1)
Quarter: 2025Q4

REPORT INFORMATION
  Report Type: Spontaneous
  Country: IQ (occurrence: IQ)
  Receive Date: 20251024
  Receipt Date: 20251024
  Transmission Date: 20260117
  Serious: Yes (Death)
  Sender: The J.Molner Company
  Company Number: IQ-THE J. MOLNER COMPANY-202510000063

PATIENT
  Age: 35 Year
  Sex: Female

DRUGS (14)
  1. HYDROCORTISONE BUTYRATE [Suspect]
     Active Substance: HYDROCORTISONE BUTYRATE
     Indication: Adrenal insufficiency
     Dosage: 100 MILLIGRAM, BID
     Route: 065
  2. HEPARIN [Concomitant]
     Active Substance: HEPARIN SODIUM
     Dosage: 1 CC TWICE DAILY
  3. CEFOTAXIME [Concomitant]
     Active Substance: CEFOTAXIME SODIUM
  4. ACETAMINOPHEN [Concomitant]
     Active Substance: ACETAMINOPHEN
  5. OMEPRAZOLE [Concomitant]
     Active Substance: OMEPRAZOLE
  6. DICLOFENAC [Concomitant]
     Active Substance: DICLOFENAC
  7. LACTATED RINGERS SOLUTION [Concomitant]
     Active Substance: CALCIUM CHLORIDE\POTASSIUM CHLORIDE\SODIUM CHLORIDE\SODIUM LACTATE
     Dosage: 1000 CC
  8. APIXABAN [Concomitant]
     Active Substance: APIXABAN
     Dosage: 5 MILLIGRAM, BID
  9. HUMAN PLASMA [Concomitant]
     Active Substance: HUMAN PLASMA
  10. METHYLPREDNISOLONE [Concomitant]
     Active Substance: METHYLPREDNISOLONE
     Dosage: 500 MILLIGRAM
  11. HYDROXYCHLOROQUINE [Concomitant]
     Active Substance: HYDROXYCHLOROQUINE
     Dosage: 200 MILLIGRAM, BID
  12. NAPROXEN [Concomitant]
     Active Substance: NAPROXEN
  13. OMEPRAZOLE [Concomitant]
     Active Substance: OMEPRAZOLE
  14. RITUXIMAB [Concomitant]
     Active Substance: RITUXIMAB
     Indication: Antiphospholipid syndrome
     Dosage: 1 GRAM
     Dates: start: 20240103

REACTIONS (1)
  - Drug ineffective [Fatal]

NARRATIVE: CASE EVENT DATE: 20231101
